FAERS Safety Report 9472106 (Version 1)
Quarter: 2013Q3

REPORT INFORMATION
  Report Type: Spontaneous
  Country: US (occurrence: US)
  Receive Date: 20130823
  Receipt Date: 20130823
  Transmission Date: 20140515
  Serious: Yes (Other)
  Sender: FDA-Public Use
  Company Number: US-JNJFOC-20130805849

PATIENT
  Age: 80 Year
  Sex: Female

DRUGS (11)
  1. BENADRYL EXTRA STRENGTH ITCH COOLING SPRAY. [Suspect]
     Indication: PRURITUS
     Dosage: COVERED ENTIRE ANKLE AREA, ONCE
     Route: 061
     Dates: start: 20130804, end: 20130804
  2. BENADRYL EXTRA STRENGTH ITCH COOLING SPRAY. [Suspect]
     Indication: ARTHROPOD BITE
     Dosage: COVERED ENTIRE ANKLE AREA, ONCE
     Route: 061
     Dates: start: 20130804, end: 20130804
  3. ATENOLOL [Concomitant]
     Indication: PRODUCT USED FOR UNKNOWN INDICATION
     Dosage: 1 PILL; INTERVAL: 1998
     Route: 065
  4. EVISTA [Concomitant]
     Indication: PRODUCT USED FOR UNKNOWN INDICATION
     Dosage: 1 PILL; INTERVAL: 1998
     Route: 065
     Dates: start: 1998
  5. AVAPRO [Concomitant]
     Indication: PRODUCT USED FOR UNKNOWN INDICATION
     Dosage: 1 PILL; INTERVAL: 1998
     Route: 065
  6. HEPSERA [Concomitant]
     Indication: PRODUCT USED FOR UNKNOWN INDICATION
     Dosage: 1 PILL; INTERVAL:1998
     Route: 065
  7. VITAMIN B COMPLEX [Concomitant]
     Indication: PRODUCT USED FOR UNKNOWN INDICATION
     Dosage: 1 PILL; INTERVAL: 1998
     Route: 065
  8. VITAMIN D [Concomitant]
     Indication: PRODUCT USED FOR UNKNOWN INDICATION
     Dosage: 1 PILL; INTERVAL: 1998
     Route: 065
  9. B12 [Concomitant]
     Indication: PRODUCT USED FOR UNKNOWN INDICATION
     Dosage: 1 PILL; INTERVAL: 1998
     Route: 065
  10. VITAMIN [Concomitant]
     Indication: PRODUCT USED FOR UNKNOWN INDICATION
     Dosage: 1 PILL; INTERVAL: 1998
     Route: 065
  11. DYAZIDE [Concomitant]
     Indication: FLUID RETENTION
     Dosage: INTERVAL: 1998
     Route: 065

REACTIONS (4)
  - Dyspnoea [Recovering/Resolving]
  - Local swelling [Recovering/Resolving]
  - Drug ineffective [Unknown]
  - Product packaging issue [Unknown]
